FAERS Safety Report 23130791 (Version 4)
Quarter: 2024Q1

REPORT INFORMATION
  Report Type: Spontaneous
  Country: US (occurrence: US)
  Receive Date: 20231031
  Receipt Date: 20240125
  Transmission Date: 20240410
  Serious: Yes (Hospitalization, Other)
  Sender: FDA-Public Use
  Company Number: US-HORIZON THERAPEUTICS-HZN-2023-008504

PATIENT

DRUGS (7)
  1. PROCYSBI [Suspect]
     Active Substance: CYSTEAMINE BITARTRATE
     Indication: Cystinosis
     Dosage: 900 MG, BID
     Route: 048
  2. CYSTARAN [Concomitant]
     Active Substance: CYSTEAMINE HYDROCHLORIDE
     Dosage: EVERY WAKING HOUR
  3. PHOSPHA 250 NEUTRAL [Concomitant]
     Active Substance: POTASSIUM PHOSPHATE, MONOBASIC\SODIUM PHOSPHATE, DIBASIC, ANHYDROUS\SODIUM PHOSPHATE, MONOBASIC, MON
     Dosage: TWO AND A HALF TABLETS PER DAY
  4. FERROUS SULFATE ANHYDROUS [Concomitant]
     Active Substance: FERROUS SULFATE ANHYDROUS
     Dosage: 325 MG, QD
  5. NUTROPIN [Concomitant]
     Active Substance: SOMATROPIN
     Dosage: 1.8 MG, QD
  6. POTASSIUM CITRATE [Concomitant]
     Active Substance: POTASSIUM CITRATE
     Dosage: 40 MEQ, BID
  7. LEVOCARNITINE [Concomitant]
     Active Substance: LEVOCARNITINE
     Dosage: TWO AND A HALF TABLETS PER DAY

REACTIONS (2)
  - Chronic kidney disease [Not Recovered/Not Resolved]
  - Appendicitis [Recovered/Resolved]
